FAERS Safety Report 8132997-0 (Version None)
Quarter: 2012Q1

REPORT INFORMATION
  Report Type: 
  Country: None (occurrence: None)
  Receive Date: 20120213
  Receipt Date: 20120208
  Transmission Date: 20120608
  Serious: Yes (Hospitalization)
  Sender: FDA-Public Use
  Company Number: CN-ROCHE-786320

PATIENT
  Sex: Female
  Weight: 65 kg

DRUGS (5)
  1. EPIRUBICIN [Concomitant]
     Indication: DIFFUSE LARGE B-CELL LYMPHOMA
     Route: 042
     Dates: start: 20110328, end: 20110621
  2. PREDNISONE TAB [Suspect]
     Indication: DIFFUSE LARGE B-CELL LYMPHOMA
     Dosage: GIVEN 7 DAYS EVERY 3 WEEKS.
     Route: 048
     Dates: start: 20110325, end: 20110624
  3. CYCLOPHOSPHAMIDE [Suspect]
     Indication: DIFFUSE LARGE B-CELL LYMPHOMA
     Route: 042
     Dates: start: 20110327, end: 20110620
  4. MABTHERA [Suspect]
     Indication: DIFFUSE LARGE B-CELL LYMPHOMA
     Route: 042
     Dates: start: 20110326, end: 20110619
  5. VINDESINE [Concomitant]
     Indication: DIFFUSE LARGE B-CELL LYMPHOMA
     Route: 042
     Dates: start: 20110327, end: 20110620

REACTIONS (3)
  - CEREBRAL INFARCTION [None]
  - LEFT VENTRICULAR FAILURE [None]
  - LUNG INFECTION [None]
